FAERS Safety Report 17447446 (Version 6)
Quarter: 2021Q4

REPORT INFORMATION
  Report Type: Report from Study
  Country: GT (occurrence: GT)
  Receive Date: 20200221
  Receipt Date: 20211009
  Transmission Date: 20220303
  Serious: Yes (Other)
  Sender: FDA-Public Use
  Company Number: PHHY2018GT153518

PATIENT
  Age: 52 Year
  Sex: Male

DRUGS (5)
  1. SECUKINUMAB [Suspect]
     Active Substance: SECUKINUMAB
     Indication: Ankylosing spondylitis
     Dosage: 150 MG, QMO
     Route: 058
     Dates: start: 20181012
  2. SECUKINUMAB [Suspect]
     Active Substance: SECUKINUMAB
     Dosage: 150 MG, QMO
     Route: 058
  3. SECUKINUMAB [Suspect]
     Active Substance: SECUKINUMAB
     Dosage: UNK
     Route: 058
  4. SECUKINUMAB [Suspect]
     Active Substance: SECUKINUMAB
     Dosage: 150 MG, QMO
     Route: 058
  5. SECUKINUMAB [Suspect]
     Active Substance: SECUKINUMAB
     Dosage: 150 MG, QMO
     Route: 058

REACTIONS (32)
  - Accident [Unknown]
  - Muscle spasms [Unknown]
  - Dizziness [Unknown]
  - Gait inability [Recovering/Resolving]
  - Musculoskeletal discomfort [Recovering/Resolving]
  - Joint swelling [Recovering/Resolving]
  - Skin lesion [Unknown]
  - Injury [Unknown]
  - Blood pressure increased [Recovering/Resolving]
  - Joint injury [Unknown]
  - Blood pressure abnormal [Unknown]
  - Liver function test abnormal [Unknown]
  - Renal disorder [Recovering/Resolving]
  - Neck pain [Unknown]
  - Mobility decreased [Unknown]
  - Productive cough [Unknown]
  - Myalgia [Not Recovered/Not Resolved]
  - Irritability [Unknown]
  - Somnolence [Unknown]
  - Feeling of relaxation [Unknown]
  - Headache [Unknown]
  - Irritable bowel syndrome [Unknown]
  - Arthralgia [Unknown]
  - Diarrhoea [Unknown]
  - Constipation [Unknown]
  - Injection site pain [Unknown]
  - Pain in extremity [Recovering/Resolving]
  - Myositis [Recovering/Resolving]
  - Inflammatory pain [Recovering/Resolving]
  - Abdominal discomfort [Recovering/Resolving]
  - Nausea [Recovering/Resolving]
  - Vomiting [Recovering/Resolving]

NARRATIVE: CASE EVENT DATE: 20190117
